FAERS Safety Report 5216825-9 (Version None)
Quarter: 2007Q1

REPORT INFORMATION
  Report Type: 
  Country: None (occurrence: None)
  Receive Date: 20070119
  Receipt Date: 20070105
  Transmission Date: 20070707
  Serious: Yes (Other)
  Sender: FDA-Public Use
  Company Number: PAR_1236_2007

PATIENT
  Sex: Female

DRUGS (8)
  1. IBUPROFEN [Suspect]
     Indication: MENSTRUAL DISORDER
     Dosage: 6 TAB PO
     Route: 048
     Dates: start: 20070105
  2. IBUPROFEN [Suspect]
     Indication: MUSCLE SPASMS
     Dosage: 6 TAB PO
     Route: 048
     Dates: start: 20070105
  3. MIDOL [Suspect]
     Indication: MENSTRUAL DISORDER
     Dosage: 880 MG QDAY PO
     Route: 048
     Dates: start: 20070105
  4. MIDOL [Suspect]
     Indication: MUSCLE SPASMS
     Dosage: 880 MG QDAY PO
     Route: 048
     Dates: start: 20070105
  5. TYLENOL (CAPLET) [Suspect]
     Indication: MENSTRUAL DISORDER
     Dosage: 5 DF PO
     Route: 048
     Dates: start: 20070105
  6. TYLENOL (CAPLET) [Suspect]
     Indication: MUSCLE SPASMS
     Dosage: 5 DF PO
     Route: 048
     Dates: start: 20070105
  7. REGULAR STRENGTH PAIN RELIEVER [Suspect]
     Indication: MENSTRUAL DISORDER
     Dosage: 2 DF PO
     Route: 048
     Dates: start: 20070105
  8. REGULAR STRENGTH PAIN RELIEVER [Suspect]
     Indication: MUSCLE SPASMS
     Dosage: 2 DF PO
     Route: 048
     Dates: start: 20070105

REACTIONS (2)
  - DYSPNOEA [None]
  - INCORRECT DOSE ADMINISTERED [None]
